FAERS Safety Report 25626375 (Version 1)
Quarter: 2025Q3

REPORT INFORMATION
  Report Type: Spontaneous
  Country: EU (occurrence: EU)
  Receive Date: 20250731
  Receipt Date: 20250731
  Transmission Date: 20251020
  Serious: Yes (Hospitalization, Other)
  Sender: RANBAXY
  Company Number: EU-SUN PHARMACEUTICAL INDUSTRIES INC-2025R1-519887

PATIENT
  Age: 47 Year
  Sex: Male

DRUGS (4)
  1. CARBOPLATIN [Suspect]
     Active Substance: CARBOPLATIN
     Indication: Tumour lysis syndrome
     Route: 065
  2. CISPLATIN [Suspect]
     Active Substance: CISPLATIN
     Indication: Tumour lysis syndrome
     Route: 065
  3. ETOPOSIDE [Suspect]
     Active Substance: ETOPOSIDE
     Indication: Tumour lysis syndrome
     Route: 065
  4. BLEOMYCIN [Suspect]
     Active Substance: BLEOMYCIN SULFATE
     Indication: Tumour lysis syndrome
     Route: 065

REACTIONS (11)
  - Therapy partial responder [Unknown]
  - Leukopenia [Unknown]
  - Sepsis [Unknown]
  - Colitis [Unknown]
  - Peritonitis [Unknown]
  - Somnolence [Unknown]
  - Hypokalaemia [Unknown]
  - Nausea [Unknown]
  - Hypoalbuminaemia [Unknown]
  - Oedema peripheral [Unknown]
  - Neutropenia [Unknown]
